FAERS Safety Report 7547129-7 (Version None)
Quarter: 2011Q2

REPORT INFORMATION
  Report Type: 
  Country: None (occurrence: None)
  Receive Date: 20110614
  Receipt Date: 20110609
  Transmission Date: 20111010
  Serious: Yes (Life-Threatening, Hospitalization)
  Sender: FDA-Public Use
  Company Number: FR-ELI_LILLY_AND_COMPANY-FR201106002460

PATIENT
  Sex: Male

DRUGS (1)
  1. CIALIS [Suspect]
     Route: 048

REACTIONS (8)
  - HYPOTENSION [None]
  - ACUTE MYOCARDIAL INFARCTION [None]
  - LOSS OF CONSCIOUSNESS [None]
  - CARDIAC TAMPONADE [None]
  - MYDRIASIS [None]
  - VENTRICLE RUPTURE [None]
  - APHASIA [None]
  - MALAISE [None]
